FAERS Safety Report 8546810-0 (Version None)
Quarter: 2012Q3

REPORT INFORMATION
  Report Type: 
  Country: None (occurrence: None)
  Receive Date: 20120727
  Receipt Date: 20120209
  Transmission Date: 20120928
  Serious: No
  Sender: FDA-Public Use
  Company Number: US-ASTRAZENECA-2012SE09011

PATIENT
  Age: 53 Year
  Sex: Female
  Weight: 59 kg

DRUGS (5)
  1. PROZAC [Concomitant]
  2. SEROQUEL XR [Suspect]
     Indication: BIPOLAR DISORDER
     Route: 048
     Dates: start: 20090101
  3. TAMELOR [Concomitant]
  4. LEVOXYL [Concomitant]
     Indication: THYROID DISORDER
  5. CLONAZEPAM [Concomitant]

REACTIONS (2)
  - FEELING ABNORMAL [None]
  - DRUG DOSE OMISSION [None]
